FAERS Safety Report 7808449-1 (Version None)
Quarter: 2011Q4

REPORT INFORMATION
  Report Type: 
  Country: None (occurrence: None)
  Receive Date: 20111012
  Receipt Date: 20111003
  Transmission Date: 20120403
  Serious: Yes (Other)
  Sender: FDA-Public Use
  Company Number: CA-JNJFOC-20111002994

PATIENT
  Sex: Male
  Weight: 88.6 kg

DRUGS (3)
  1. MESALAMINE [Concomitant]
     Route: 065
  2. REMICADE [Suspect]
     Indication: CROHN'S DISEASE
     Route: 042
     Dates: start: 20101109
  3. AZATHIOPRINE [Concomitant]
     Dosage: ONE AND HALF TABLETS
     Route: 065

REACTIONS (7)
  - SURGERY [None]
  - NASAL CONGESTION [None]
  - PRURITUS [None]
  - COUGH [None]
  - CHILLS [None]
  - THROAT IRRITATION [None]
  - RHINORRHOEA [None]
